FAERS Safety Report 7344771-3 (Version None)
Quarter: 2011Q1

REPORT INFORMATION
  Report Type: 
  Country: None (occurrence: None)
  Receive Date: 20110310
  Receipt Date: 20110228
  Transmission Date: 20110831
  Serious: Yes (Death)
  Sender: FDA-Public Use
  Company Number: JP-CELGENEUS-087-21880-11022494

PATIENT
  Sex: Female

DRUGS (11)
  1. MAGMITT [Concomitant]
     Dosage: 990 MILLIGRAM
     Route: 048
     Dates: start: 20110118, end: 20110123
  2. CARNACULIN [Concomitant]
     Indication: HYPERTENSION
     Dosage: 100 MILLIGRAM
     Route: 048
     Dates: start: 20110118, end: 20110123
  3. CARDENALIN [Concomitant]
     Indication: HYPERTENSION
     Dosage: 2 MILLIGRAM
     Route: 048
     Dates: start: 20110118, end: 20110123
  4. MORPHINE HYDROCHLORIDE [Concomitant]
     Dosage: 10 MILLIGRAM
     Route: 058
     Dates: start: 20110125, end: 20110126
  5. LENADEX [Suspect]
     Indication: MULTIPLE MYELOMA
     Dosage: 20 MILLIGRAM
     Route: 048
     Dates: start: 20110118, end: 20110118
  6. AMLODIPINE [Concomitant]
     Indication: HYPERTENSION
     Dosage: 5 MILLIGRAM
     Route: 048
     Dates: start: 20110118, end: 20110123
  7. REVLIMID [Suspect]
     Indication: MULTIPLE MYELOMA
     Dosage: 15 MILLIGRAM
     Route: 048
     Dates: start: 20110118, end: 20110122
  8. MAXIPIME [Concomitant]
     Indication: PROPHYLAXIS
     Dosage: 2000 MILLIGRAM
     Route: 041
     Dates: start: 20110118, end: 20110123
  9. EPADEL [Concomitant]
     Dosage: 1800 MILLIGRAM
     Route: 048
     Dates: start: 20110118, end: 20110123
  10. ZYLORIC [Concomitant]
     Dosage: 100 MILLIGRAM
     Route: 048
     Dates: start: 20110118, end: 20110123
  11. PARIET [Concomitant]
     Dosage: 10 MILLIGRAM
     Route: 048
     Dates: start: 20110118, end: 20110123

REACTIONS (2)
  - RENAL FAILURE [None]
  - INFLUENZA [None]
